FAERS Safety Report 17521871 (Version 1)
Quarter: 2020Q1

REPORT INFORMATION
  Report Type: Spontaneous
  Country: DE (occurrence: DE)
  Receive Date: 20200310
  Receipt Date: 20200310
  Transmission Date: 20200409
  Serious: Yes (Other)
  Sender: FDA-Public Use
  Company Number: DE-PFIZER INC-2020099424

PATIENT

DRUGS (1)
  1. CYTOTEC [Suspect]
     Active Substance: MISOPROSTOL
     Indication: LABOUR INDUCTION
     Dosage: 25 UG, UNK
     Route: 064
     Dates: start: 20161001, end: 20161002

REACTIONS (3)
  - Foetal heart rate decreased [Recovered/Resolved]
  - Foetal exposure during delivery [Recovered/Resolved]
  - Foetal heart rate abnormal [Recovered/Resolved]

NARRATIVE: CASE EVENT DATE: 20161001
